FAERS Safety Report 4728132-9 (Version None)
Quarter: 2005Q3

REPORT INFORMATION
  Report Type: 
  Country: None (occurrence: None)
  Receive Date: 20050727
  Receipt Date: 20050722
  Transmission Date: 20060218
  Serious: Yes (Hospitalization)
  Sender: FDA-Public Use
  Company Number: 215472

PATIENT
  Age: 77 Year
  Sex: Female
  Weight: 81.5 kg

DRUGS (20)
  1. HERCEPTIN [Suspect]
     Indication: BREAST CANCER
     Dosage: 486 MG,INTRAVENOUS
     Route: 042
  2. DOXETAXEL (DOCETAXEL) [Suspect]
     Indication: BREAST CANCER
     Dosage: 109 MG, INTRAVENOUS
     Route: 042
  3. CARBOPLATIN [Suspect]
     Indication: BREAST CANCER
     Dosage: 382 MG, INTRAVENOUS
     Route: 042
  4. LEVOFLOXACIN [Concomitant]
  5. QUINAPRIL HCL [Concomitant]
  6. FUROSEMIDE (FUROSEMIDE) [Concomitant]
  7. LEVOTHYROXINE (LEVOTHYROXINE SODIUM) [Concomitant]
  8. VERAPAMIL [Concomitant]
  9. DULCOLAX [Concomitant]
  10. CETIRIZINE HCL [Concomitant]
  11. CALCIUM/VITAMIN D [Concomitant]
  12. LORAZEPAM [Concomitant]
  13. MOUTHWASH NOS (MOUTHWASH NOS) [Concomitant]
  14. PRAMOCAINE (PRAMOXINE HYDROCHLORIDE) [Concomitant]
  15. DOCUSATE SODIUM (DOCUSATE SODIUM) [Concomitant]
  16. SENNA (SENNA) [Concomitant]
  17. BISCODYL (BISACODYL) [Suspect]
  18. DEXAMETHASONE [Concomitant]
  19. GABAPENTIN [Concomitant]
  20. EPOETIN (EPOETIN NOS) [Concomitant]

REACTIONS (5)
  - DEHYDRATION [None]
  - FATIGUE [None]
  - NEUTROPENIA [None]
  - PYREXIA [None]
  - RENAL FAILURE ACUTE [None]
